FAERS Safety Report 15844909 (Version 4)
Quarter: 2019Q2

REPORT INFORMATION
  Report Type: Report from Study
  Country: None (occurrence: NL)
  Receive Date: 20190118
  Receipt Date: 20190613
  Transmission Date: 20190711
  Serious: Yes (Hospitalization, Other)
  Sender: FDA-Public Use
  Company Number: NL-ABBVIE-19S-114-2627825-00

PATIENT
  Age: 52 Year
  Sex: Female
  Weight: 72 kg

DRUGS (2)
  1. DUODOPA [Suspect]
     Active Substance: CARBIDOPA\LEVODOPA
     Indication: PARKINSON^S DISEASE
     Dosage: MD: 8.5 CD AT 2:30 PM: 5.3 CD AT 2:30 PM AT 8 PM: 5.0 CD FROM 8 PM AT 12 PM: 5.1 ED: 2.8
     Route: 050
     Dates: start: 20181029
  2. NAPROXEN. [Concomitant]
     Active Substance: NAPROXEN
     Indication: PRODUCT USED FOR UNKNOWN INDICATION

REACTIONS (4)
  - Abnormal loss of weight [Not Recovered/Not Resolved]
  - Rectal cancer [Recovered/Resolved]
  - Emotional distress [Unknown]
  - Parkinson^s disease [Not Recovered/Not Resolved]

NARRATIVE: CASE EVENT DATE: 201901
